FAERS Safety Report 9028650 (Version 1)
Quarter: 2013Q1

REPORT INFORMATION
  Report Type: Spontaneous
  Country: US (occurrence: US)
  Receive Date: 20130124
  Receipt Date: 20130124
  Transmission Date: 20140127
  Serious: No
  Sender: FDA-Public Use
  Company Number: PHEH2013US002001

PATIENT
  Sex: Male
  Weight: 122.45 kg

DRUGS (8)
  1. TASIGNA [Suspect]
     Indication: CHRONIC MYELOID LEUKAEMIA
     Dosage: 2 DF, BID
     Route: 048
  2. SPRYCEL [Concomitant]
     Dosage: 100 MG, UNK
  3. JANUMET [Concomitant]
     Dosage: 50-1000 UNK, UNK
  4. ZOLOFT [Concomitant]
     Dosage: 25 MG, UNK
  5. NAPROXEN SODIUM [Concomitant]
     Dosage: 220 MG, UNK
  6. GLIPIZIDE [Concomitant]
     Dosage: 5 MG, UNK
  7. HYDROCODONE W/APAP [Concomitant]
     Dosage: 10-325 MG, UNK
  8. VALACYCLOVIR HYDROCHLORIDE [Concomitant]
     Dosage: 500 MG, UNK

REACTIONS (4)
  - Pain in extremity [Unknown]
  - Arthralgia [Unknown]
  - Fatigue [Unknown]
  - Local swelling [Unknown]
